FAERS Safety Report 9587519 (Version 1)
Quarter: 2013Q4

REPORT INFORMATION
  Report Type: Spontaneous
  Country: US (occurrence: US)
  Receive Date: 20131003
  Receipt Date: 20131003
  Transmission Date: 20140711
  Serious: No
  Sender: FDA-Public Use
  Company Number: US-JNJFOC-20130915630

PATIENT
  Age: 5 Decade
  Sex: Male

DRUGS (9)
  1. INVEGA SUSTENNA [Suspect]
     Indication: SCHIZOPHRENIA
     Route: 030
     Dates: start: 2013
  2. RISPERDAL [Suspect]
     Indication: PRODUCT USED FOR UNKNOWN INDICATION
     Route: 048
  3. LUNESTA [Suspect]
     Indication: PRODUCT USED FOR UNKNOWN INDICATION
     Route: 065
  4. ABILIFY [Suspect]
     Indication: PRODUCT USED FOR UNKNOWN INDICATION
     Route: 065
  5. DEPAKOTE ER [Concomitant]
     Route: 065
  6. DEPLIN [Concomitant]
     Route: 065
  7. LUTADA [Concomitant]
     Route: 065
  8. COGENTIN [Concomitant]
     Route: 065
  9. ALPRAZOLAM [Concomitant]
     Dosage: 1/2 MG AT EVERY BED TIME
     Route: 065

REACTIONS (2)
  - Drug ineffective [Unknown]
  - Overweight [Unknown]
